FAERS Safety Report 9035949 (Version 1)
Quarter: 2013Q1

REPORT INFORMATION
  Report Type: Report from Study
  Country: US (occurrence: US)
  Receive Date: 20130129
  Receipt Date: 20130129
  Transmission Date: 20140127
  Serious: No
  Sender: FDA-Public Use
  Company Number: US-ABBOTT-12P-163-0916812-00

PATIENT
  Age: 45 Year
  Sex: Male

DRUGS (18)
  1. HUMIRA 40 MG/0.8 ML PEN [Suspect]
     Indication: ANKYLOSING SPONDYLITIS
     Dates: start: 20120217
  2. PRILOSEC [Concomitant]
     Indication: GASTROOESOPHAGEAL REFLUX DISEASE
  3. PRAVASTATIN [Concomitant]
     Indication: BLOOD CHOLESTEROL
  4. NIFEDIPINE XR [Concomitant]
     Indication: HYPERTENSION
  5. METHOTREXATE [Concomitant]
     Indication: ANKYLOSING SPONDYLITIS
     Dosage: 2.5 MG X 6 TABS WEEKLY
  6. PREDNISONE [Concomitant]
     Indication: PRODUCT USED FOR UNKNOWN INDICATION
  7. SULFASALAZINE [Concomitant]
     Indication: ANKYLOSING SPONDYLITIS
  8. SEROQUEL [Concomitant]
     Indication: ANXIETY
     Dosage: 200 MG X 1.5 TABS TWICE DAILY
  9. SEROQUEL [Concomitant]
     Indication: DEPRESSION
     Dosage: 200 MG X 2.5 TABS AT BEDTIME
  10. SEROQUEL [Concomitant]
     Indication: BIPOLAR DISORDER
  11. LITHIUM CARBONATE [Concomitant]
     Indication: ANXIETY
  12. LITHIUM CARBONATE [Concomitant]
     Indication: DEPRESSION
  13. LITHIUM CARBONATE [Concomitant]
     Indication: BIPOLAR DISORDER
  14. CLONAZEPAM [Concomitant]
     Indication: ANXIETY
     Dosage: 0.5 MG X 2 DAILY AS REQUIRED
  15. ATROVENT [Concomitant]
     Indication: PRODUCT USED FOR UNKNOWN INDICATION
     Dosage: NOT USING VERY OFEN
  16. COLACE [Concomitant]
     Indication: CONSTIPATION
  17. RECLAST [Concomitant]
     Indication: OSTEOPOROSIS
     Dosage: ONCE A YEAR
     Route: 042
  18. CPAP [Concomitant]
     Indication: SLEEP APNOEA SYNDROME
     Dosage: AT NIGHT

REACTIONS (2)
  - Injection site haemorrhage [Recovering/Resolving]
  - Injection site bruising [Recovering/Resolving]
